FAERS Safety Report 13806428 (Version 2)
Quarter: 2017Q3

REPORT INFORMATION
  Report Type: Spontaneous
  Country: US (occurrence: US)
  Receive Date: 20170728
  Receipt Date: 20170728
  Transmission Date: 20171127
  Serious: No
  Sender: FDA-Public Use
  Company Number: US-ASTRAZENECA-2017SE75580

PATIENT
  Age: 9880 Day
  Sex: Male
  Weight: 79.4 kg

DRUGS (4)
  1. SEROQUEL XR [Suspect]
     Active Substance: QUETIAPINE FUMARATE
     Indication: BIPOLAR DISORDER
     Route: 048
     Dates: start: 2007, end: 20170717
  2. SEROQUEL XR [Suspect]
     Active Substance: QUETIAPINE FUMARATE
     Indication: DEPRESSION
     Route: 048
     Dates: start: 2007, end: 20170717
  3. PAROXETINE. [Concomitant]
     Active Substance: PAROXETINE
     Indication: ANXIETY
     Dosage: DAILY
     Route: 048
     Dates: start: 2007
  4. SEROQUEL XR [Suspect]
     Active Substance: QUETIAPINE FUMARATE
     Indication: ANXIETY
     Route: 048
     Dates: start: 2007, end: 20170717

REACTIONS (12)
  - Retching [Unknown]
  - Intentional product misuse [Unknown]
  - Dizziness [Unknown]
  - Drug dose omission [Recovered/Resolved]
  - Insomnia [Recovered/Resolved]
  - Hyperhidrosis [Unknown]
  - Rhinorrhoea [Unknown]
  - Impaired work ability [Unknown]
  - Nausea [Unknown]
  - Vomiting [Unknown]
  - Chills [Unknown]
  - Withdrawal syndrome [Unknown]

NARRATIVE: CASE EVENT DATE: 20170719
